FAERS Safety Report 6075695-X (Version None)
Quarter: 2009Q1

REPORT INFORMATION
  Report Type: 
  Country: None (occurrence: None)
  Receive Date: 20090212
  Receipt Date: 20090204
  Transmission Date: 20090719
  Serious: Yes (Disabling)
  Sender: FDA-Public Use
  Company Number: JP-MERCK-0901USA03423

PATIENT
  Age: 85 Year
  Sex: Male

DRUGS (6)
  1. PEPCID [Suspect]
     Route: 048
     Dates: start: 20081016, end: 20081125
  2. LANIRAPID [Concomitant]
     Route: 065
     Dates: start: 20081105, end: 20081117
  3. MUCODYNE DS [Concomitant]
     Route: 065
     Dates: start: 20081003, end: 20081127
  4. BIO THREE [Concomitant]
     Route: 065
     Dates: start: 20081003, end: 20081127
  5. SODIUM CHLORIDE [Concomitant]
     Route: 048
     Dates: start: 20081030, end: 20081127
  6. WARFARIN SODIUM [Concomitant]
     Route: 048
     Dates: start: 20080611

REACTIONS (1)
  - RENAL FAILURE ACUTE [None]
